FAERS Safety Report 18555589 (Version 1)
Quarter: 2020Q4

REPORT INFORMATION
  Report Type: Spontaneous
  Country: US (occurrence: US)
  Receive Date: 20201127
  Receipt Date: 20201127
  Transmission Date: 20210114
  Serious: No
  Sender: FDA-Public Use
  Company Number: US-TEVA-2020-US-1852679

PATIENT
  Age: 52 Year
  Sex: Male

DRUGS (4)
  1. ADDERALL [Suspect]
     Active Substance: AMPHETAMINE ASPARTATE\AMPHETAMINE SULFATE\DEXTROAMPHETAMINE SACCHARATE\DEXTROAMPHETAMINE SULFATE
     Indication: ATTENTION DEFICIT HYPERACTIVITY DISORDER
     Route: 065
     Dates: end: 2020
  2. CITALOPRAM MYLAN [Concomitant]
     Active Substance: CITALOPRAM HYDROBROMIDE
     Dosage: 40 MG
     Route: 065
  3. ARIPIPRAZOLE AJANTA [Concomitant]
     Route: 065
  4. ARMODAFINIL TEVA [Suspect]
     Active Substance: ARMODAFINIL
     Indication: ATTENTION DEFICIT HYPERACTIVITY DISORDER
     Dosage: 250 MILLIGRAM DAILY;
     Route: 048
     Dates: start: 2020

REACTIONS (2)
  - Drug screen positive [Unknown]
  - Off label use [Unknown]

NARRATIVE: CASE EVENT DATE: 2020
